FAERS Safety Report 8453761-9 (Version None)
Quarter: 2012Q2

REPORT INFORMATION
  Report Type: 
  Country: None (occurrence: None)
  Receive Date: 20120620
  Receipt Date: 20120614
  Transmission Date: 20120825
  Serious: Yes (Other)
  Sender: FDA-Public Use
  Company Number: US-BAYER-2011-120562

PATIENT
  Age: 83 Year
  Sex: Male

DRUGS (3)
  1. NEXAVAR [Suspect]
     Indication: RENAL CELL CARCINOMA
     Dosage: 200 MG, QD
     Dates: start: 20111209, end: 20111220
  2. NEXAVAR [Suspect]
     Dosage: 200 MG, BID
     Route: 048
     Dates: start: 20111221, end: 20120120
  3. NEXAVAR [Suspect]
     Dosage: 400 MG, BID
     Dates: start: 20120401

REACTIONS (6)
  - DRY SKIN [None]
  - DIABETIC NEUROPATHY [None]
  - BALANCE DISORDER [None]
  - SKIN DISORDER [None]
  - WALKING AID USER [None]
  - ERYTHEMA [None]
